FAERS Safety Report 8816743 (Version 2)
Quarter: 2012Q4

REPORT INFORMATION
  Report Type: Spontaneous
  Country: US (occurrence: None)
  Receive Date: 20121001
  Receipt Date: 20121011
  Transmission Date: 20130627
  Serious: Yes (Other)
  Sender: FDA-Public Use
  Company Number: JPI-P-024008

PATIENT
  Age: 35 Year
  Sex: Female

DRUGS (7)
  1. XYREM [Suspect]
     Indication: NARCOLEPSY
     Dosage: 6 gm (3 gm, 2 in 1 D), Oral
     Dates: start: 20110906
  2. XYREM [Suspect]
     Indication: EXCESSIVE DAYTIME SLEEPINESS
     Dosage: 6 gm (3 gm, 2 in 1 D), Oral
     Dates: start: 20110906
  3. MODAFINIL [Concomitant]
     Indication: EXCESSIVE DAYTIME SLEEPINESS
  4. MODAFINIL [Concomitant]
     Indication: SLEEP ATTACKS
  5. CLONAZEPAN [Concomitant]
  6. ESCITALOPRAM OXALATE [Concomitant]
  7. OMEPRAZOLE [Concomitant]

REACTIONS (4)
  - Caesarean section [None]
  - Pregnancy [None]
  - Exposure during pregnancy [None]
  - Amniotic cavity infection [None]
